FAERS Safety Report 9711169 (Version 2)
Quarter: 2013Q4

REPORT INFORMATION
  Report Type: Spontaneous
  Country: US (occurrence: US)
  Receive Date: 20131126
  Receipt Date: 20131126
  Transmission Date: 20140711
  Serious: No
  Sender: FDA-Public Use
  Company Number: US-BRISTOL-MYERS SQUIBB COMPANY-19182351

PATIENT
  Age: 67 Year
  Sex: Male

DRUGS (4)
  1. BYETTA PEN DISPOSABLE [Suspect]
     Indication: TYPE 2 DIABETES MELLITUS
     Dosage: 05AUG2013 AND 06AUG2013
     Route: 058
     Dates: start: 20130805
  2. METFORMIN [Concomitant]
  3. HYZAAR [Concomitant]
  4. AMLODIPINE [Concomitant]

REACTIONS (2)
  - Product quality issue [Unknown]
  - Drug dose omission [Unknown]
